FAERS Safety Report 7040416-0 (Version None)
Quarter: 2010Q4

REPORT INFORMATION
  Report Type: 
  Country: None (occurrence: None)
  Receive Date: 20101008
  Receipt Date: 20101008
  Transmission Date: 20110411
  Serious: No
  Sender: FDA-Public Use
  Company Number: None

PATIENT
  Age: 38 Year
  Sex: Male
  Weight: 115.2136 kg

DRUGS (1)
  1. ZYVOX [Suspect]
     Indication: STAPHYLOCOCCAL INFECTION
     Dosage: 1 PILL TWICE A DAY ORAL -P
     Route: 048
     Dates: start: 20100905, end: 20100914

REACTIONS (2)
  - DIARRHOEA [None]
  - HYPOAESTHESIA [None]
